FAERS Safety Report 23481139 (Version 1)
Quarter: 2024Q1

REPORT INFORMATION
  Report Type: Spontaneous
  Country: US (occurrence: None)
  Receive Date: 20240202
  Receipt Date: 20240202
  Transmission Date: 20240410
  Serious: Yes (Other)
  Sender: FDA-Public Use
  Company Number: None

PATIENT
  Age: 73 Year
  Sex: Female

DRUGS (1)
  1. CARBIDOPA [Suspect]
     Active Substance: CARBIDOPA
     Dosage: 50MG 6 TIMES DAILY?

REACTIONS (1)
  - Hallucination [None]
